FAERS Safety Report 7523103-1 (Version None)
Quarter: 2011Q2

REPORT INFORMATION
  Report Type: 
  Country: None (occurrence: None)
  Receive Date: 20110603
  Receipt Date: 20110530
  Transmission Date: 20111010
  Serious: Yes (Hospitalization)
  Sender: FDA-Public Use
  Company Number: FR-ABBOTT-11P-056-0729389-00

PATIENT
  Age: 26 Year
  Sex: Male

DRUGS (3)
  1. DEPAKENE [Suspect]
     Indication: MYOCLONIC EPILEPSY
     Route: 048
     Dates: start: 20100401
  2. ZONEGRAN [Suspect]
     Indication: EPILEPSY
     Route: 048
     Dates: start: 20080201
  3. URBANYL [Suspect]
     Indication: PRODUCT USED FOR UNKNOWN INDICATION
     Dosage: 5 MG MORNING AND 10 MG EVENING
     Route: 048

REACTIONS (3)
  - FAECAL INCONTINENCE [None]
  - URINARY INCONTINENCE [None]
  - FRONTOTEMPORAL DEMENTIA [None]
